FAERS Safety Report 19734953 (Version 16)
Quarter: 2024Q2

REPORT INFORMATION
  Report Type: Report from Study
  Country: GB (occurrence: GB)
  Receive Date: 20210823
  Receipt Date: 20240620
  Transmission Date: 20240716
  Serious: Yes (Hospitalization)
  Sender: FDA-Public Use
  Company Number: GB-ROCHE-2891095

PATIENT
  Age: 60 Year
  Sex: Female
  Weight: 67.8 kg

DRUGS (29)
  1. ATEZOLIZUMAB [Suspect]
     Active Substance: ATEZOLIZUMAB
     Indication: Small cell lung cancer extensive stage
     Dosage: RECEIVED BEFORE SIGNING THE INFORMED CONSENT?ON 07/JUL/2021: MOST RECENT DOSE OF STUDY DRUG 1200 MG
     Route: 042
     Dates: start: 20210616
  2. ATEZOLIZUMAB [Suspect]
     Active Substance: ATEZOLIZUMAB
     Dosage: VISIT 1
     Route: 041
     Dates: start: 20210707
  3. ATEZOLIZUMAB [Suspect]
     Active Substance: ATEZOLIZUMAB
     Route: 065
  4. ATEZOLIZUMAB [Suspect]
     Active Substance: ATEZOLIZUMAB
     Route: 065
  5. CARBOPLATIN [Suspect]
     Active Substance: CARBOPLATIN
     Indication: Small cell lung cancer extensive stage
     Route: 065
     Dates: start: 20210616
  6. CARBOPLATIN [Suspect]
     Active Substance: CARBOPLATIN
     Route: 065
     Dates: start: 20210707
  7. CARBOPLATIN [Suspect]
     Active Substance: CARBOPLATIN
     Route: 065
     Dates: start: 20220208, end: 20220412
  8. ETOPOSIDE [Suspect]
     Active Substance: ETOPOSIDE
     Indication: Small cell lung cancer extensive stage
     Route: 048
     Dates: start: 20210708, end: 20210709
  9. ETOPOSIDE [Suspect]
     Active Substance: ETOPOSIDE
     Route: 042
     Dates: start: 20210707
  10. ETOPOSIDE [Suspect]
     Active Substance: ETOPOSIDE
     Route: 065
     Dates: start: 20210708, end: 20210709
  11. ETOPOSIDE [Suspect]
     Active Substance: ETOPOSIDE
     Route: 048
     Dates: start: 20210729
  12. ETOPOSIDE [Suspect]
     Active Substance: ETOPOSIDE
     Route: 065
     Dates: start: 20210707
  13. ONDANSETRON [Concomitant]
     Active Substance: ONDANSETRON
     Dates: start: 20210707, end: 20210707
  14. ONDANSETRON [Concomitant]
     Active Substance: ONDANSETRON
     Dosage: FREQUENCY TEXT:PRN
     Dates: start: 20210708, end: 20210712
  15. ONDANSETRON [Concomitant]
     Active Substance: ONDANSETRON
     Dates: start: 20210616, end: 20210616
  16. ONDANSETRON [Concomitant]
     Active Substance: ONDANSETRON
     Dosage: YES
     Dates: start: 20210818, end: 20210818
  17. ONDANSETRON [Concomitant]
     Active Substance: ONDANSETRON
     Dates: start: 20210728, end: 20210728
  18. DEXAMETHASONE [Concomitant]
     Active Substance: DEXAMETHASONE
     Dates: start: 20210616, end: 20210616
  19. DEXAMETHASONE [Concomitant]
     Active Substance: DEXAMETHASONE
     Dates: start: 20210708, end: 20210709
  20. DEXAMETHASONE [Concomitant]
     Active Substance: DEXAMETHASONE
     Dates: start: 20210707, end: 20210707
  21. DEXAMETHASONE [Concomitant]
     Active Substance: DEXAMETHASONE
     Dates: start: 20210818, end: 20210818
  22. DEXAMETHASONE [Concomitant]
     Active Substance: DEXAMETHASONE
     Dates: start: 20210728, end: 20210728
  23. ACETAMINOPHEN [Concomitant]
     Active Substance: ACETAMINOPHEN
     Dosage: FREQUENCY TEXT:PRN
     Dates: end: 20211011
  24. CODEINE [Concomitant]
     Active Substance: CODEINE
     Dosage: FREQUENCY TEXT:PRN
     Dates: end: 20211011
  25. IBUPROFEN [Concomitant]
     Active Substance: IBUPROFEN
     Dosage: FREQUENCY TEXT:PRN
     Dates: end: 20211011
  26. LEVOFLOXACIN [Concomitant]
     Active Substance: LEVOFLOXACIN
     Dates: start: 20210715, end: 20210720
  27. FILGRASTIM [Concomitant]
     Active Substance: FILGRASTIM
     Dosage: FREQUENCY TEXT:QD
     Dates: start: 20210708, end: 20210712
  28. METOCLOPRAMIDE [Concomitant]
     Active Substance: METOCLOPRAMIDE
     Dosage: FREQUENCY TEXT:PRN
     Dates: start: 20210708, end: 20210712
  29. HUMAN RED BLOOD CELL [Concomitant]
     Active Substance: HUMAN RED BLOOD CELL
     Dosage: FREQUENCY TEXT:PRN
     Dates: start: 20210917, end: 20210917

REACTIONS (8)
  - Lower respiratory tract infection [Recovered/Resolved]
  - Alopecia [Recovered/Resolved]
  - Mucosal inflammation [Recovered/Resolved]
  - Fatigue [Not Recovered/Not Resolved]
  - Diarrhoea [Not Recovered/Not Resolved]
  - Anaemia [Not Recovered/Not Resolved]
  - Dry skin [Not Recovered/Not Resolved]
  - Palmar-plantar erythrodysaesthesia syndrome [Not Recovered/Not Resolved]

NARRATIVE: CASE EVENT DATE: 20210728
